FAERS Safety Report 11608620 (Version 1)
Quarter: 2015Q3

REPORT INFORMATION
  Report Type: Spontaneous
  Country: US (occurrence: US)
  Receive Date: 20150916
  Receipt Date: 20150916
  Transmission Date: 20151125
  Serious: No
  Sender: FDA-Public Use
  Company Number: US-ELI_LILLY_AND_COMPANY-US201311000459

PATIENT
  Age: 48 Year
  Sex: Male

DRUGS (2)
  1. HUMALOG [Suspect]
     Active Substance: INSULIN LISPRO
     Indication: TYPE 1 DIABETES MELLITUS
     Dosage: UNK
     Route: 058
  2. HUMALOG [Suspect]
     Active Substance: INSULIN LISPRO
     Route: 058

REACTIONS (4)
  - Deafness [Unknown]
  - Blood glucose abnormal [Recovered/Resolved]
  - Learning disorder [Unknown]
  - Drug ineffective [Recovered/Resolved]
